FAERS Safety Report 18808863 (Version 2)
Quarter: 2021Q1

REPORT INFORMATION
  Report Type: Spontaneous
  Country: IN (occurrence: IN)
  Receive Date: 20210129
  Receipt Date: 20210210
  Transmission Date: 20210419
  Serious: Yes (Hospitalization, Other)
  Sender: FDA-Public Use
  Company Number: IN-CIPLA LTD.-2021IN00650

PATIENT

DRUGS (2)
  1. ETOPOSIDE. [Suspect]
     Active Substance: ETOPOSIDE
     Indication: GERM CELL CANCER METASTATIC
     Dosage: 200 MILLIGRAM PER CYCLICAL
     Route: 065
  2. CARBOPLATIN. [Suspect]
     Active Substance: CARBOPLATIN
     Indication: GERM CELL CANCER METASTATIC
     Dosage: 450 MILLIGRAM, PER CYCLICAL
     Route: 065

REACTIONS (8)
  - Sepsis [Recovering/Resolving]
  - Hyperkalaemia [Recovering/Resolving]
  - Escherichia infection [Recovering/Resolving]
  - Acute kidney injury [Recovering/Resolving]
  - Renal failure [Recovering/Resolving]
  - Febrile neutropenia [Recovering/Resolving]
  - Necrosis [Unknown]
  - Tumour lysis syndrome [Recovering/Resolving]
